FAERS Safety Report 8471529-4 (Version None)
Quarter: 2012Q2

REPORT INFORMATION
  Report Type: 
  Country: None (occurrence: None)
  Receive Date: 20120627
  Receipt Date: 20120619
  Transmission Date: 20120825
  Serious: Yes (Death, Life-Threatening, Other)
  Sender: FDA-Public Use
  Company Number: PL-JNJFOC-20120610892

PATIENT

DRUGS (4)
  1. VINCRISTINE [Suspect]
     Indication: LYMPHOMA
     Route: 065
  2. CYCLOPHOSPHAMIDE [Suspect]
     Indication: LYMPHOMA
     Route: 065
  3. DOXORUBICIN HCL [Suspect]
     Indication: LYMPHOMA
     Dosage: AVERAGE DOSE: 336,5 MG/M2 (RANGE 50-680)
     Route: 042
  4. PREDNISOLONE [Suspect]
     Indication: LYMPHOMA
     Route: 065

REACTIONS (8)
  - CARDIOVASCULAR DISORDER [None]
  - LYMPHOMA [None]
  - CARDIOTOXICITY [None]
  - INFECTION [None]
  - ANGINA PECTORIS [None]
  - DEATH [None]
  - EJECTION FRACTION DECREASED [None]
  - MYOCARDIAL INFARCTION [None]
